FAERS Safety Report 15051527 (Version 1)
Quarter: 2018Q2

REPORT INFORMATION
  Report Type: Spontaneous
  Country: NO (occurrence: NO)
  Receive Date: 20180622
  Receipt Date: 20180622
  Transmission Date: 20180711
  Serious: Yes (Death, Hospitalization)
  Sender: FDA-Public Use
  Company Number: NO-JNJFOC-20180625523

PATIENT
  Age: 92 Year
  Sex: Female
  Weight: 67 kg

DRUGS (8)
  1. HALDOL [Suspect]
     Active Substance: HALOPERIDOL
     Indication: DEMENTIA
     Route: 065
     Dates: start: 2018, end: 2018
  2. HALDOL [Suspect]
     Active Substance: HALOPERIDOL
     Indication: DEMENTIA
     Route: 065
     Dates: start: 20180206
  3. HALDOL [Suspect]
     Active Substance: HALOPERIDOL
     Indication: ANXIETY
     Route: 065
     Dates: start: 201801, end: 2018
  4. HALDOL [Suspect]
     Active Substance: HALOPERIDOL
     Indication: DEMENTIA
     Route: 065
     Dates: start: 2018, end: 2018
  5. HALDOL [Suspect]
     Active Substance: HALOPERIDOL
     Indication: ANXIETY
     Route: 065
     Dates: start: 2018, end: 2018
  6. HALDOL [Suspect]
     Active Substance: HALOPERIDOL
     Indication: ANXIETY
     Route: 065
     Dates: start: 20180206
  7. HALDOL [Suspect]
     Active Substance: HALOPERIDOL
     Indication: ANXIETY
     Route: 065
     Dates: start: 2018, end: 2018
  8. HALDOL [Suspect]
     Active Substance: HALOPERIDOL
     Indication: DEMENTIA
     Route: 065
     Dates: start: 201801, end: 2018

REACTIONS (8)
  - Viral infection [Unknown]
  - Dysphagia [Unknown]
  - Hypersomnia [Unknown]
  - Mucous membrane disorder [Unknown]
  - Flat affect [Unknown]
  - Death [Fatal]
  - Dyspnoea [Unknown]
  - Respiratory tract congestion [Unknown]

NARRATIVE: CASE EVENT DATE: 2018
